FAERS Safety Report 5019541-1 (Version None)
Quarter: 2006Q2

REPORT INFORMATION
  Report Type: 
  Country: None (occurrence: None)
  Receive Date: 20060531
  Receipt Date: 20060517
  Transmission Date: 20061013
  Serious: Yes (Other)
  Sender: FDA-Public Use
  Company Number: B0425247A

PATIENT
  Age: 50 Year
  Sex: Female

DRUGS (12)
  1. VALTREX [Suspect]
     Indication: ANTIVIRAL PROPHYLAXIS
     Dosage: 166 MG / THREE TIMES PER DAY / ORAL
     Route: 048
     Dates: start: 20030502
  2. TACROLIMUS [Concomitant]
  3. SIROLIMUS [Concomitant]
  4. DACLIXIMAB [Concomitant]
  5. CEFAZOLIN SODIUM [Concomitant]
  6. CO-TRIMOXAZOLE [Concomitant]
  7. VITAMIN E [Concomitant]
  8. PYRIDOXINE HYDROCHLORIDE INJ [Concomitant]
  9. RETINOL [Concomitant]
  10. HEPARIN [Concomitant]
  11. MYCOPHENOLATE MOFETIL [Concomitant]
  12. IMIPENEM [Concomitant]

REACTIONS (3)
  - ALANINE AMINOTRANSFERASE INCREASED [None]
  - GAMMA-GLUTAMYLTRANSFERASE INCREASED [None]
  - GLOMERULAR FILTRATION RATE DECREASED [None]
